FAERS Safety Report 25519659 (Version 1)
Quarter: 2025Q3

REPORT INFORMATION
  Report Type: Spontaneous
  Country: GB (occurrence: GB)
  Receive Date: 20250704
  Receipt Date: 20250704
  Transmission Date: 20251020
  Serious: Yes (Other)
  Sender: MSN LABORATORIES PRIVATE LIMITED
  Company Number: GB-MHRA-TPP27580288C10136576YC1750769950130

PATIENT

DRUGS (7)
  1. ATORVASTATIN [Suspect]
     Active Substance: ATORVASTATIN
     Indication: Ill-defined disorder
     Dosage: EVERY MORNING-AVOID GRAPEFRUIT
     Route: 048
     Dates: start: 20241108, end: 20250624
  2. BIBECFO [Concomitant]
     Indication: Ill-defined disorder
     Dates: start: 20250520
  3. ALLOPURINOL [Concomitant]
     Active Substance: ALLOPURINOL
     Indication: Gout
     Dosage: ONCE A DAY
     Route: 048
     Dates: start: 20241108
  4. APIXABAN [Concomitant]
     Active Substance: APIXABAN
     Indication: Anticoagulant therapy
     Route: 048
     Dates: start: 20241108
  5. RAMIPRIL [Concomitant]
     Active Substance: RAMIPRIL
     Indication: Ill-defined disorder
     Dosage: EVERY MORNING
     Route: 048
     Dates: start: 20241108
  6. MIRTAZAPINE [Concomitant]
     Active Substance: MIRTAZAPINE
     Indication: Depressed mood
     Dosage: AT NIGHT
     Route: 048
     Dates: start: 20241121, end: 20250624
  7. ROSUVASTATIN [Concomitant]
     Active Substance: ROSUVASTATIN
     Indication: Blood cholesterol increased
     Dosage: EVERY MORNING
     Route: 048
     Dates: start: 20250624

REACTIONS (2)
  - Musculoskeletal stiffness [Unknown]
  - Myalgia [Recovered/Resolved]

NARRATIVE: CASE EVENT DATE: 20250624
